FAERS Safety Report 19364049 (Version 1)
Quarter: 2021Q2

REPORT INFORMATION
  Report Type: Report from Study
  Country: SE (occurrence: SE)
  Receive Date: 20210603
  Receipt Date: 20210603
  Transmission Date: 20210717
  Serious: Yes (Hospitalization)
  Sender: FDA-Public Use
  Company Number: PHHO2017SE014537

PATIENT
  Age: 54 Year
  Sex: Male
  Weight: 73 kg

DRUGS (7)
  1. OXYNORM [Concomitant]
     Active Substance: OXYCODONE HYDROCHLORIDE
     Indication: MALIGNANT MELANOMA
     Dosage: 10 MG, PRN
     Route: 048
     Dates: start: 20170804
  2. OXYCONTIN [Concomitant]
     Active Substance: OXYCODONE HYDROCHLORIDE
     Indication: MALIGNANT MELANOMA
  3. BETAMETASON [Concomitant]
     Indication: VOMITING
     Dosage: 4 MG, QD
     Route: 048
     Dates: start: 20171014
  4. CAPMATINIB [Suspect]
     Active Substance: CAPMATINIB
     Indication: NEOPLASM
     Dosage: 400 MG, BID
     Route: 048
     Dates: start: 20171013, end: 20171018
  5. OXYCONTIN [Concomitant]
     Active Substance: OXYCODONE HYDROCHLORIDE
     Indication: TUMOUR PAIN
     Dosage: 20 MG, BID
     Route: 048
     Dates: start: 20170804
  6. OXYNORM [Concomitant]
     Active Substance: OXYCODONE HYDROCHLORIDE
     Indication: TUMOUR PAIN
  7. METOKLOPRAMID [Concomitant]
     Indication: VOMITING
     Dosage: 10 MG, PRN
     Route: 048
     Dates: start: 20171014

REACTIONS (1)
  - Myocardial infarction [Recovered/Resolved]

NARRATIVE: CASE EVENT DATE: 20171019
